FAERS Safety Report 22854032 (Version 2)
Quarter: 2023Q4

REPORT INFORMATION
  Report Type: Spontaneous
  Country: US (occurrence: US)
  Receive Date: 20230823
  Receipt Date: 20231117
  Transmission Date: 20240110
  Serious: No
  Sender: FDA-Public Use
  Company Number: US-ARCUTIS BIOTHERAPEUTICS INC-2023AER000068

PATIENT

DRUGS (1)
  1. ZORYVE [Suspect]
     Active Substance: ROFLUMILAST
     Indication: Psoriasis
     Dosage: UNK UNK, QD AS DIRECTED
     Route: 061
     Dates: start: 2023

REACTIONS (3)
  - Psoriasis [Unknown]
  - Product prescribing error [Unknown]
  - Therapeutic product effect incomplete [Unknown]
